FAERS Safety Report 11724992 (Version 1)
Quarter: 2015Q4

REPORT INFORMATION
  Report Type: Spontaneous
  Country: US (occurrence: US)
  Receive Date: 20151111
  Receipt Date: 20151111
  Transmission Date: 20160304
  Serious: No
  Sender: FDA-Public Use
  Company Number: US-UCBSA-2014011080

PATIENT
  Age: 28 Year
  Sex: Male

DRUGS (2)
  1. KEPPRA XR [Suspect]
     Active Substance: LEVETIRACETAM
     Indication: SEIZURE
     Dosage: DOSE: 750 MG 4/DAY: TOTAL DAILY DOSE: 3000 MG
     Dates: start: 20100921
  2. VIMPAT [Suspect]
     Active Substance: LACOSAMIDE
     Indication: SEIZURE
     Dosage: DOSE:150 MG 2/DAY. TOTAL DAILY DOSE:300 MG
     Dates: start: 20121008

REACTIONS (2)
  - Seizure [Recovered/Resolved]
  - Malaise [Recovered/Resolved]

NARRATIVE: CASE EVENT DATE: 20140902
